FAERS Safety Report 4939444-8 (Version None)
Quarter: 2006Q1

REPORT INFORMATION
  Report Type: 
  Country: None (occurrence: None)
  Receive Date: 20060306
  Receipt Date: 20060220
  Transmission Date: 20060701
  Serious: No
  Sender: FDA-Public Use
  Company Number: 2006-138755-NL

PATIENT
  Age: 45 Year
  Sex: Female

DRUGS (1)
  1. FOLLITROPIN BETA [Suspect]
     Indication: ANOVULATORY CYCLE
     Dates: start: 20040701, end: 20040901

REACTIONS (1)
  - BREAST CANCER STAGE IV [None]
